FAERS Safety Report 8809086 (Version 2)
Quarter: 2012Q4

REPORT INFORMATION
  Report Type: 
  Country: CA (occurrence: CA)
  Receive Date: 20120926
  Receipt Date: 20121123
  Transmission Date: 20130627
  Serious: Yes (Other)
  Sender: FDA-Public Use
  Company Number: CA-JNJFOC-20120608136

PATIENT
  Sex: Female
  Weight: 38 kg

DRUGS (2)
  1. REMICADE [Suspect]
     Indication: JUVENILE ARTHRITIS
     Route: 042
     Dates: start: 201109
  2. REMICADE [Suspect]
     Indication: UVEITIS
     Route: 042
     Dates: start: 201109

REACTIONS (2)
  - Eye operation [Unknown]
  - Glaucoma [Unknown]
